FAERS Safety Report 8589257-3 (Version None)
Quarter: 2012Q3

REPORT INFORMATION
  Report Type: 
  Country: None (occurrence: None)
  Receive Date: 20120813
  Receipt Date: 20120803
  Transmission Date: 20120928
  Serious: Yes (Other)
  Sender: FDA-Public Use
  Company Number: US-JNJFOC-20120706102

PATIENT
  Sex: Male
  Weight: 90.72 kg

DRUGS (5)
  1. LEXAPRO [Suspect]
     Route: 048
     Dates: start: 20120101
  2. ZYTIGA [Suspect]
     Indication: PROSTATE CANCER
     Route: 048
     Dates: start: 20120401
  3. PREDNISONE TAB [Suspect]
     Route: 048
     Dates: start: 20120101
  4. LEXAPRO [Suspect]
     Indication: DEPRESSION
     Route: 048
     Dates: end: 20120101
  5. PREDNISONE TAB [Suspect]
     Indication: PROSTATE CANCER
     Route: 048
     Dates: start: 20120101

REACTIONS (13)
  - DYSPNOEA EXERTIONAL [None]
  - HYPERSOMNIA [None]
  - CONFUSIONAL STATE [None]
  - MUSCULAR WEAKNESS [None]
  - DIZZINESS [None]
  - FATIGUE [None]
  - HYPOKINESIA [None]
  - FEAR [None]
  - WEIGHT INCREASED [None]
  - PAIN [None]
  - HEADACHE [None]
  - DEPRESSION [None]
  - OEDEMA PERIPHERAL [None]
